FAERS Safety Report 8995772 (Version 1)
Quarter: 2013Q1

REPORT INFORMATION
  Report Type: Spontaneous
  Country: US (occurrence: US)
  Receive Date: 20130103
  Receipt Date: 20130103
  Transmission Date: 20140127
  Serious: No
  Sender: FDA-Public Use
  Company Number: US-ABBOTT-12P-163-0908368-00

PATIENT
  Age: 73 Year
  Sex: Female
  Weight: 59.02 kg

DRUGS (9)
  1. SYNTHROID 88 MCG [Suspect]
     Indication: THYROID DISORDER
     Dosage: 88 MCG DAILY
     Dates: start: 201202
  2. ADVAIR [Concomitant]
     Indication: ASTHMA
  3. ALBUTEROL [Concomitant]
     Indication: ASTHMA
  4. SINGULAIR [Concomitant]
     Indication: ASTHMA
  5. NEXIUM [Concomitant]
     Indication: HIATUS HERNIA
  6. MELOXICAM [Concomitant]
     Indication: ARTHRITIS
  7. ALLEGRA [Concomitant]
     Indication: HYPERSENSITIVITY
  8. POLYSACCHARIDE [Concomitant]
     Indication: COELIAC DISEASE
  9. B12-VITAMIN [Concomitant]
     Indication: COELIAC DISEASE

REACTIONS (5)
  - Influenza like illness [Not Recovered/Not Resolved]
  - Body temperature decreased [Not Recovered/Not Resolved]
  - Abdominal discomfort [Not Recovered/Not Resolved]
  - Diarrhoea [Not Recovered/Not Resolved]
  - Frequent bowel movements [Not Recovered/Not Resolved]
